FAERS Safety Report 24316730 (Version 1)
Quarter: 2024Q3

REPORT INFORMATION
  Report Type: Spontaneous
  Country: US (occurrence: US)
  Receive Date: 20240913
  Receipt Date: 20240913
  Transmission Date: 20241016
  Serious: No
  Sender: MERCK
  Company Number: US-009507513-2408USA010519

PATIENT
  Age: 63 Year
  Sex: Female

DRUGS (1)
  1. KEYTRUDA [Suspect]
     Active Substance: PEMBROLIZUMAB
     Indication: Colorectal cancer stage IV
     Dosage: 200 MILLIGRAM, Q3W
     Route: 042

REACTIONS (3)
  - Dermatitis psoriasiform [Recovering/Resolving]
  - Lichenoid keratosis [Recovering/Resolving]
  - Eczema [Recovering/Resolving]
